FAERS Safety Report 7626422-3 (Version None)
Quarter: 2011Q3

REPORT INFORMATION
  Report Type: 
  Country: None (occurrence: None)
  Receive Date: 20110721
  Receipt Date: 20110711
  Transmission Date: 20111222
  Serious: Yes (Hospitalization)
  Sender: FDA-Public Use
  Company Number: JP-ASTRAZENECA-2006AP04120

PATIENT
  Age: 15720 Day
  Sex: Female
  Weight: 70 kg

DRUGS (5)
  1. LENDORMIN [Concomitant]
     Route: 048
  2. SEROQUEL [Suspect]
     Indication: DEPRESSION
     Route: 048
     Dates: start: 20060608, end: 20060805
  3. LORAZEPAM [Concomitant]
     Indication: DEPRESSION
     Route: 048
     Dates: start: 20060608
  4. PAXIL [Concomitant]
     Indication: DEPRESSION
     Route: 048
     Dates: start: 20060608, end: 20060819
  5. DEPAKENE [Concomitant]
     Indication: DEPRESSION
     Route: 048
     Dates: start: 20060608

REACTIONS (2)
  - OFF LABEL USE [None]
  - HYPERGLYCAEMIA [None]
